FAERS Safety Report 25576848 (Version 1)
Quarter: 2025Q3

REPORT INFORMATION
  Report Type: Other
  Country: CN (occurrence: CN)
  Receive Date: 20250718
  Receipt Date: 20250718
  Transmission Date: 20251020
  Serious: Yes (Hospitalization, Other)
  Sender: NAVINTA LLC
  Company Number: CN-Navinta LLC-000538

PATIENT
  Age: 68 Year
  Sex: Female
  Weight: 41 kg

DRUGS (2)
  1. ROPIVACAINE [Suspect]
     Active Substance: ROPIVACAINE
     Indication: Nerve block
     Dosage: A TOTAL OF ?10 ML LA (0.375% ROPIVACAINE MIXED WITH 1% LIDOCAINE)
  2. LIDOCAINE [Suspect]
     Active Substance: LIDOCAINE
     Indication: Nerve block
     Dosage: A TOTAL OF ?10 ML LA (0.375% ROPIVACAINE MIXED WITH 1% LIDOCAINE)

REACTIONS (1)
  - Neurotoxicity [Recovering/Resolving]
